FAERS Safety Report 7024138-8 (Version None)
Quarter: 2010Q4

REPORT INFORMATION
  Report Type: 
  Country: None (occurrence: None)
  Receive Date: 20101001
  Receipt Date: 20100202
  Transmission Date: 20110411
  Serious: Yes (Death)
  Sender: FDA-Public Use
  Company Number: FR-ROCHE-645864

PATIENT
  Sex: Male
  Weight: 60 kg

DRUGS (12)
  1. METHOXY POLYETHYLENE GLYCOL-EPOETIN BETA [Suspect]
     Dosage: FORM PRE-FILLED SYNRINGE
     Route: 042
     Dates: start: 20090407, end: 20090722
  2. CARDENSIEL [Concomitant]
     Dates: start: 20021101
  3. KARDEGIC [Concomitant]
     Dates: start: 20021101
  4. TAHOR [Concomitant]
     Dates: start: 20021101
  5. PLAVIX [Concomitant]
     Dates: start: 20020101
  6. MIMPARA [Concomitant]
     Dates: start: 20070101
  7. KAYEXALATE [Concomitant]
     Dates: start: 20070101
  8. LASIX [Concomitant]
     Dates: start: 20021101
  9. SERETIDE [Concomitant]
     Dates: start: 20070101
  10. MOPRAL [Concomitant]
     Dates: start: 20050401
  11. NOVORAPID [Concomitant]
     Dates: start: 20050101
  12. LEVEMIR [Concomitant]
     Dates: start: 20070101

REACTIONS (1)
  - GASTROINTESTINAL NECROSIS [None]
